FAERS Safety Report 7439411-9 (Version None)
Quarter: 2011Q2

REPORT INFORMATION
  Report Type: 
  Country: None (occurrence: None)
  Receive Date: 20110427
  Receipt Date: 20110413
  Transmission Date: 20111010
  Serious: Yes (Other)
  Sender: FDA-Public Use
  Company Number: US-JNJFOC-20110406079

PATIENT
  Sex: Male

DRUGS (1)
  1. REMICADE [Suspect]
     Indication: UVEITIS
     Dosage: THE PATIENT HAS RECEIVED INFLIXIMAB FOR ABOUT 4 YEARS
     Route: 042

REACTIONS (1)
  - MYOSITIS [None]
